FAERS Safety Report 10423539 (Version 1)
Quarter: 2014Q3

REPORT INFORMATION
  Report Type: Spontaneous
  Country: US (occurrence: US)
  Receive Date: 20140902
  Receipt Date: 20140902
  Transmission Date: 20150326
  Serious: No
  Sender: FDA-Public Use
  Company Number: US-PFIZER INC-2014241445

PATIENT

DRUGS (2)
  1. INSULIN [Concomitant]
     Active Substance: INSULIN NOS
  2. ZYVOX [Suspect]
     Active Substance: LINEZOLID
     Dosage: (600MG IN 300ML), GIVEN OVER A PERIOD OF 1 HOUR

REACTIONS (1)
  - Blood glucose increased [Unknown]
